FAERS Safety Report 19279103 (Version 1)
Quarter: 2021Q2

REPORT INFORMATION
  Report Type: Spontaneous
  Country: US (occurrence: US)
  Receive Date: 20210520
  Receipt Date: 20210520
  Transmission Date: 20210717
  Serious: Yes (Hospitalization)
  Sender: FDA-Public Use
  Company Number: None

PATIENT
  Age: 59 Year
  Sex: Female

DRUGS (8)
  1. DEXMETHASON [Concomitant]
  2. MAGOX 400 [Concomitant]
     Active Substance: MAGNESIUM OXIDE
  3. VITAMIN D [Concomitant]
     Active Substance: VITAMIN D NOS
  4. LETROZOLE 2.5MG TAB [Suspect]
     Active Substance: LETROZOLE
     Indication: ENDOMETRIAL CANCER
     Route: 048
     Dates: start: 20210325
  5. AFINITOR [Suspect]
     Active Substance: EVEROLIMUS
     Indication: ENDOMETRIAL CANCER
     Route: 048
     Dates: start: 20210319
  6. MAGNESIUM?OX [Concomitant]
  7. LORAZEPAM. [Concomitant]
     Active Substance: LORAZEPAM
  8. AMOXILLIN [Concomitant]
     Active Substance: AMOXICILLIN

REACTIONS (1)
  - Intestinal obstruction [None]

NARRATIVE: CASE EVENT DATE: 20210512
